FAERS Safety Report 8030028-4 (Version None)
Quarter: 2012Q1

REPORT INFORMATION
  Report Type: 
  Country: None (occurrence: None)
  Receive Date: 20120109
  Receipt Date: 20120106
  Transmission Date: 20120608
  Serious: Yes (Death)
  Sender: FDA-Public Use
  Company Number: GB-JNJFOC-20120101853

PATIENT
  Age: 54 Year
  Sex: Male

DRUGS (4)
  1. DIPROBASE [Concomitant]
     Indication: PRODUCT USED FOR UNKNOWN INDICATION
     Route: 065
  2. PROCYCLIDINE HYDROCHLORIDE 2MG TAB [Concomitant]
     Indication: PRODUCT USED FOR UNKNOWN INDICATION
     Route: 048
  3. FORTISIP [Concomitant]
     Indication: PRODUCT USED FOR UNKNOWN INDICATION
     Route: 048
  4. PALIPERIDONE [Suspect]
     Indication: PSYCHOTIC DISORDER
     Route: 030
     Dates: start: 20111125

REACTIONS (1)
  - SUDDEN DEATH [None]
